FAERS Safety Report 14492441 (Version 1)
Quarter: 2018Q1

REPORT INFORMATION
  Report Type: Report from Study
  Country: US (occurrence: US)
  Receive Date: 20180206
  Receipt Date: 20180206
  Transmission Date: 20180509
  Serious: Yes (Hospitalization)
  Sender: FDA-Public Use
  Company Number: US-SA-2016SA175466

PATIENT
  Age: 40 Year
  Sex: Female

DRUGS (1)
  1. LEMTRADA [Suspect]
     Active Substance: ALEMTUZUMAB
     Indication: MULTIPLE SCLEROSIS
     Route: 041
     Dates: start: 20160711, end: 20160713

REACTIONS (8)
  - Fall [Recovered/Resolved]
  - Weight increased [Unknown]
  - Temporomandibular joint syndrome [Not Recovered/Not Resolved]
  - Arthropathy [Unknown]
  - Arthritis [Not Recovered/Not Resolved]
  - Lymphocyte count decreased [Unknown]
  - Migraine [Not Recovered/Not Resolved]
  - Fatigue [Not Recovered/Not Resolved]

NARRATIVE: CASE EVENT DATE: 201609
